FAERS Safety Report 24908343 (Version 2)
Quarter: 2025Q2

REPORT INFORMATION
  Report Type: Spontaneous
  Country: US (occurrence: US)
  Receive Date: 20250131
  Receipt Date: 20250403
  Transmission Date: 20250716
  Serious: No
  Sender: ROCHE
  Company Number: US-ROCHE-10000190924

PATIENT
  Age: 44 Year
  Sex: Female

DRUGS (9)
  1. XOLAIR PFS [Suspect]
     Active Substance: OMALIZUMAB
     Indication: Urticaria
     Dosage: STRENGTH 150MG/ML
     Route: 058
  2. XOLAIR PFS [Suspect]
     Active Substance: OMALIZUMAB
  3. epinephrine 0.3mg/0.3ml injection [Concomitant]
     Indication: Anaphylactic reaction
     Route: 030
     Dates: start: 20240910
  4. ESZOPICLONE [Concomitant]
     Active Substance: ESZOPICLONE
     Dosage: 2 TABLET (2MG), AT BEDTIME
     Route: 048
  5. HYDROXYZINE HYDROCHLORIDE [Concomitant]
     Active Substance: HYDROXYZINE HYDROCHLORIDE
     Route: 048
  6. LEVOCETIRIZINE [Concomitant]
     Active Substance: LEVOCETIRIZINE
     Dosage: 5 MG TABLET
     Route: 048
  7. PREDNISONE [Concomitant]
     Active Substance: PREDNISONE
  8. promethazine 6.25 mg/ 5 ml oral syrup [Concomitant]
     Route: 048
  9. symbicort 160 mcg. 4.5mcg/ per actiuation HFA [Concomitant]
     Dosage: 2 PUFFS
     Route: 055

REACTIONS (2)
  - Injection site rash [Unknown]
  - Urticaria [Unknown]
